FAERS Safety Report 11238324 (Version 1)
Quarter: 2015Q3

REPORT INFORMATION
  Report Type: Spontaneous
  Country: TR (occurrence: TR)
  Receive Date: 20150704
  Receipt Date: 20150704
  Transmission Date: 20151125
  Serious: Yes (Other)
  Sender: FDA-Public Use
  Company Number: TR-AUROBINDO-AUR-APL-2015-05492

PATIENT

DRUGS (1)
  1. GABAPENTIN. [Suspect]
     Active Substance: GABAPENTIN
     Indication: NEURALGIA
     Dosage: 300 MG, DAILY
     Route: 065

REACTIONS (13)
  - Agitation [Recovered/Resolved]
  - Fear [Recovered/Resolved]
  - Insomnia [Recovered/Resolved]
  - Thinking abnormal [Recovered/Resolved]
  - Decreased appetite [Recovered/Resolved]
  - Depressed mood [Recovered/Resolved]
  - Crying [Recovered/Resolved]
  - Mental retardation [Recovered/Resolved]
  - Suicidal ideation [Recovered/Resolved]
  - Soliloquy [Recovered/Resolved]
  - Hallucinations, mixed [Recovered/Resolved]
  - Major depression [Recovered/Resolved]
  - Anxiety [Recovered/Resolved]
